FAERS Safety Report 21335041 (Version 1)
Quarter: 2022Q3

REPORT INFORMATION
  Report Type: Spontaneous
  Country: ES (occurrence: ES)
  Receive Date: 20220914
  Receipt Date: 20220914
  Transmission Date: 20221027
  Serious: Yes (Death, Hospitalization, Other)
  Sender: FDA-Public Use
  Company Number: ES-CELGENE-ESP-20220105987

PATIENT
  Age: 72 Year
  Sex: Male
  Weight: 104 kg

DRUGS (5)
  1. AZACITIDINE [Suspect]
     Active Substance: AZACITIDINE
     Indication: Acute myeloid leukaemia
     Dosage: FREQUENCY TEXT: NOT PROVIDED?37.5 MILLIGRAM/SQ.METER ON DAY 1-7 DAYS IN 28 DAYS CYCLE.
     Route: 058
     Dates: start: 20201013, end: 20210118
  2. PEVONEDISTAT [Suspect]
     Active Substance: PEVONEDISTAT
     Indication: Acute myeloid leukaemia
     Dosage: FREQUENCY TEXT: NOT PROVIDED?20 MILLIGRAM/SQ.METER AT ON DAY 1, 3 AND 5
     Route: 042
     Dates: start: 20201013
  3. PEVONEDISTAT [Suspect]
     Active Substance: PEVONEDISTAT
     Dosage: FREQUENCY TEXT: NOT PROVIDED?20 MILLIGRAM/SQ.METER
     Route: 042
     Dates: start: 20210114, end: 20210118
  4. Platelet pool concentration [Concomitant]
     Indication: Thrombocytopenia
     Dosage: FREQUENCY TEXT: NOT PROVIDED
     Route: 065
  5. blood cell concentration [Concomitant]
     Indication: Thrombocytopenia
     Dosage: FREQUENCY TEXT: NOT PROVIDED
     Route: 065

REACTIONS (2)
  - Chronic kidney disease [Fatal]
  - Respiratory tract infection [Fatal]

NARRATIVE: CASE EVENT DATE: 20210114
